FAERS Safety Report 25950343 (Version 2)
Quarter: 2025Q4

REPORT INFORMATION
  Report Type: Spontaneous
  Country: JP (occurrence: JP)
  Receive Date: 20251022
  Receipt Date: 20251103
  Transmission Date: 20260117
  Serious: Yes (Hospitalization, Other)
  Sender: SANOFI AVENTIS
  Company Number: JP-DialogSolutions-SAAVPROD-PI831887-C1

PATIENT
  Age: 40 Year
  Sex: Male

DRUGS (22)
  1. LITHIUM CARBONATE [Interacting]
     Active Substance: LITHIUM CARBONATE
     Indication: Depression
     Dosage: 200 MG, QD
  2. LITHIUM CARBONATE [Interacting]
     Active Substance: LITHIUM CARBONATE
     Indication: Bipolar disorder
  3. IBUPROFEN [Interacting]
     Active Substance: IBUPROFEN
     Dosage: 200 MG
  4. BROMAZEPAM [Interacting]
     Active Substance: BROMAZEPAM
     Indication: Bipolar disorder
     Dosage: 1 MG
  5. BROMAZEPAM [Interacting]
     Active Substance: BROMAZEPAM
     Dosage: 2 MG
  6. BROMAZEPAM [Interacting]
     Active Substance: BROMAZEPAM
     Dosage: 4 MG
  7. ZOLPIDEM TARTRATE [Interacting]
     Active Substance: ZOLPIDEM TARTRATE
     Indication: Depression
     Dosage: 10 MG
  8. ZOLPIDEM TARTRATE [Interacting]
     Active Substance: ZOLPIDEM TARTRATE
     Indication: Bipolar disorder
  9. ARIPIPRAZOLE [Interacting]
     Active Substance: ARIPIPRAZOLE
     Indication: Bipolar disorder
     Dosage: 1 MG
  10. ARIPIPRAZOLE [Interacting]
     Active Substance: ARIPIPRAZOLE
     Indication: Depression
  11. QUETIAPINE FUMARATE [Interacting]
     Active Substance: QUETIAPINE FUMARATE
     Indication: Depression
     Dosage: 12.5 MG
  12. QUETIAPINE FUMARATE [Interacting]
     Active Substance: QUETIAPINE FUMARATE
     Indication: Bipolar disorder
  13. AMITRIPTYLINE HYDROCHLORIDE [Interacting]
     Active Substance: AMITRIPTYLINE HYDROCHLORIDE
     Indication: Bipolar disorder
     Dosage: 10 MG
  14. AMITRIPTYLINE HYDROCHLORIDE [Interacting]
     Active Substance: AMITRIPTYLINE HYDROCHLORIDE
     Indication: Depression
  15. TRIAZOLAM [Interacting]
     Active Substance: TRIAZOLAM
     Indication: Bipolar disorder
     Dosage: 0.25 MG
  16. TRIAZOLAM [Interacting]
     Active Substance: TRIAZOLAM
     Indication: Depression
  17. CLOXAZOLAM [Interacting]
     Active Substance: CLOXAZOLAM
     Indication: Depression
     Dosage: 2 MG
  18. CLOXAZOLAM [Interacting]
     Active Substance: CLOXAZOLAM
     Indication: Bipolar disorder
  19. MIANSERIN [Interacting]
     Active Substance: MIANSERIN
     Indication: Bipolar disorder
     Dosage: 10 MG
  20. MIANSERIN [Interacting]
     Active Substance: MIANSERIN
     Indication: Depression
  21. OLANZAPINE [Interacting]
     Active Substance: OLANZAPINE
     Indication: Bipolar disorder
     Dosage: 2.5 MG
  22. OLANZAPINE [Interacting]
     Active Substance: OLANZAPINE
     Indication: Depression

REACTIONS (10)
  - IIIrd nerve disorder [Recovering/Resolving]
  - Toxicity to various agents [Recovering/Resolving]
  - Dysarthria [Recovering/Resolving]
  - Gait disturbance [Recovering/Resolving]
  - Nystagmus [Recovering/Resolving]
  - Vestibular disorder [Recovering/Resolving]
  - Altered state of consciousness [Recovering/Resolving]
  - Vertigo [Recovering/Resolving]
  - Dizziness [Recovering/Resolving]
  - Drug interaction [Recovering/Resolving]
